FAERS Safety Report 21147073 (Version 1)
Quarter: 2022Q3

REPORT INFORMATION
  Report Type: Report from Study
  Country: MZ (occurrence: MZ)
  Receive Date: 20220729
  Receipt Date: 20220729
  Transmission Date: 20221026
  Serious: Yes (Other)
  Sender: FDA-Public Use
  Company Number: MZ-CIPLA LTD.-2022MZ04621

PATIENT
  Age: 19 Year
  Sex: Female

DRUGS (1)
  1. ALBENDAZOLE [Suspect]
     Active Substance: ALBENDAZOLE
     Indication: Malaria prophylaxis
     Dosage: 400 MILLIGRAM, MONTHLY
     Route: 048
     Dates: start: 20220319, end: 20220319

REACTIONS (2)
  - Abortion spontaneous [Unknown]
  - Maternal exposure during pregnancy [Unknown]

NARRATIVE: CASE EVENT DATE: 20220526
